FAERS Safety Report 4319308-3 (Version None)
Quarter: 2004Q1

REPORT INFORMATION
  Report Type: 
  Country: None (occurrence: None)
  Receive Date: 20040316
  Receipt Date: 20040304
  Transmission Date: 20041129
  Serious: Yes (Death)
  Sender: FDA-Public Use
  Company Number: JP-JNJFOC-20040203115

PATIENT
  Age: 55 Year
  Sex: Male

DRUGS (17)
  1. FENTANYL [Suspect]
     Indication: CANCER PAIN
     Dosage: SEE IMAGE
     Route: 062
     Dates: start: 22040126, end: 20040129
  2. FENTANYL [Suspect]
     Indication: CANCER PAIN
     Dosage: SEE IMAGE
     Route: 062
     Dates: start: 20040129, end: 20040205
  3. OXYECOIA (ALL OTHER THERAPEUTIC PRODUCTS) [Concomitant]
  4. BROTIZOLAM (BROTIZOLAM) [Concomitant]
  5. DICLOFENAC SODIUM [Concomitant]
  6. MORPHINE [Concomitant]
  7. PROTEINS, AMINO ACID AND PREPARATIONS (ALLOTHER THERAPEUTIC PRODUCTS) [Concomitant]
  8. OTHER CARDIOVASCULAR AGENTS (CARDIOVASCULAR SYSTEM DRUGS) [Concomitant]
  9. CILAZAPRIL (CILAZAPRIL) [Concomitant]
  10. AMLODIPINE BESYLATE [Concomitant]
  11. ATENOLOL [Concomitant]
  12. OTHER AGENTS RELATING TO BLOOD AND BODY FLUIDS (ALL OTHER THERAPEUTIC [Concomitant]
  13. TRAPIDIL (TRAPIDIL) [Concomitant]
  14. JUZEN-TAIHO-TO (JUMI-HAIDOKU-TO) [Concomitant]
  15. SOFALCONE (SOFALCONE) [Concomitant]
  16. DEXAMETHASONE [Concomitant]
  17. MORPHINE [Concomitant]

REACTIONS (4)
  - DEPRESSED LEVEL OF CONSCIOUSNESS [None]
  - DRUG INEFFECTIVE [None]
  - DYSARTHRIA [None]
  - RESPIRATORY DEPRESSION [None]
